APPROVED DRUG PRODUCT: DIGOXIN
Active Ingredient: DIGOXIN
Strength: 0.25MG/ML
Dosage Form/Route: INJECTABLE;INJECTION
Application: A084386 | Product #001
Applicant: WYETH AYERST LABORATORIES
Approved: Approved Prior to Jan 1, 1982 | RLD: No | RS: No | Type: DISCN